FAERS Safety Report 4264479-0 (Version None)
Quarter: 2004Q1

REPORT INFORMATION
  Report Type: 
  Country: None (occurrence: None)
  Receive Date: 20040106
  Receipt Date: 20040106
  Transmission Date: 20041129
  Serious: Yes (Hospitalization)
  Sender: FDA-Public Use
  Company Number: None

PATIENT
  Age: 49 Year
  Sex: Female
  Weight: 55.7 kg

DRUGS (1)
  1. GM-CSF 12/20-1 2/3 SUBCUTANEOUS [Suspect]
     Dosage: GM-CSF 12/20-1 2/3 SUBCUTANEOUS
     Route: 058
     Dates: start: 20031220, end: 20031230

REACTIONS (3)
  - LEUKOPENIA [None]
  - PYREXIA [None]
  - THROMBOCYTOPENIA [None]
